FAERS Safety Report 4924976-9 (Version None)
Quarter: 2006Q1

REPORT INFORMATION
  Report Type: 
  Country: None (occurrence: None)
  Receive Date: 20060222
  Receipt Date: 20060208
  Transmission Date: 20060701
  Serious: Yes (Life-Threatening, Hospitalization)
  Sender: FDA-Public Use
  Company Number: 2006RR-01613

PATIENT
  Age: 85 Year
  Sex: Female
  Weight: 66 kg

DRUGS (8)
  1. ENALAPRIL MALEATE [Suspect]
     Dosage: 10 MG, QD, NOCTURNALLY, ORAL
     Route: 048
     Dates: start: 20050401, end: 20050407
  2. ENALAPRIL MALEATE [Suspect]
     Dosage: 20 MG, QD, MANE, ORAL
     Route: 048
     Dates: start: 20050401, end: 20050407
  3. ZOCOR [Concomitant]
  4. ECOTRIN [Concomitant]
  5. NATRILIX [Concomitant]
  6. PHYSIOTENS [Concomitant]
  7. LIVIFEM [Concomitant]
  8. TELFAST [Concomitant]

REACTIONS (2)
  - BLOOD PRESSURE INCREASED [None]
  - MALAISE [None]
